FAERS Safety Report 13938641 (Version 1)
Quarter: 2017Q3

REPORT INFORMATION
  Report Type: Report from Study
  Country: None (occurrence: SE)
  Receive Date: 20170906
  Receipt Date: 20170906
  Transmission Date: 20171127
  Serious: Yes (Other)
  Sender: FDA-Public Use
  Company Number: SE-ABBVIE-14P-150-1302228-00

PATIENT
  Sex: Female

DRUGS (1)
  1. DUODOPA [Suspect]
     Active Substance: CARBIDOPA\LEVODOPA
     Indication: PARKINSON^S DISEASE
     Dosage: MD: UNCLEAR, CD: 2.6ML/H, ED: 1ML/H
     Route: 050
     Dates: start: 20110206

REACTIONS (1)
  - Benign neoplasm of thyroid gland [Recovered/Resolved]
